FAERS Safety Report 5071309-6 (Version None)
Quarter: 2006Q3

REPORT INFORMATION
  Report Type: 
  Country: None (occurrence: None)
  Receive Date: 20060804
  Receipt Date: 20051208
  Transmission Date: 20061208
  Serious: No
  Sender: FDA-Public Use
  Company Number: US-AMGEN-US160759

PATIENT
  Sex: Male
  Weight: 71 kg

DRUGS (13)
  1. ARANESP [Suspect]
     Indication: DIALYSIS
     Route: 042
     Dates: start: 20050404
  2. NORVASC [Concomitant]
  3. ATENOLOL [Concomitant]
  4. ASPIRIN [Concomitant]
  5. PLAVIX [Concomitant]
  6. PHOSLO [Concomitant]
  7. NEPHRO-CAPS [Concomitant]
  8. ZEMPLAR [Concomitant]
     Route: 042
  9. VENOFER [Concomitant]
  10. NITRO-DUR [Concomitant]
  11. LISINOPRIL [Concomitant]
  12. PRILOSEC [Concomitant]
  13. SENSIPAR [Concomitant]
     Indication: HYPERPARATHYROIDISM SECONDARY

REACTIONS (1)
  - HAEMOGLOBIN DECREASED [None]
